FAERS Safety Report 16785227 (Version 1)
Quarter: 2019Q3

REPORT INFORMATION
  Report Type: Spontaneous
  Country: US (occurrence: US)
  Receive Date: 20190909
  Receipt Date: 20190909
  Transmission Date: 20191005
  Serious: Yes (Hospitalization)
  Sender: FDA-Public Use
  Company Number: US-ROCHE-2402637

PATIENT
  Sex: Male

DRUGS (1)
  1. HEMLIBRA [Suspect]
     Active Substance: EMICIZUMAB-KXWH
     Indication: HEREDITARY DISORDER
     Dosage: SUBCUTANEOUS EVERY  14 DAYS, 60 MG/0.4ML
     Route: 058
     Dates: start: 201905

REACTIONS (1)
  - Head injury [Unknown]
